FAERS Safety Report 12668029 (Version 1)
Quarter: 2016Q3

REPORT INFORMATION
  Report Type: Spontaneous
  Country: FR (occurrence: FR)
  Receive Date: 20160819
  Receipt Date: 20160819
  Transmission Date: 20161109
  Serious: Yes (Hospitalization)
  Sender: FDA-Public Use
  Company Number: FR-MYLANLABS-2016M1034531

PATIENT

DRUGS (12)
  1. IMOVANE [Suspect]
     Active Substance: ZOPICLONE
     Indication: PRODUCT USED FOR UNKNOWN INDICATION
     Dosage: 7.5 MG, QD
     Route: 048
     Dates: start: 20160617, end: 20160719
  2. ALPRAZOLAM MYLAN 0.25 MG, COMPRIM? S?CABLE [Suspect]
     Active Substance: ALPRAZOLAM
     Indication: PROCEDURAL ANXIETY
     Dosage: 0.25 MG, QD
     Route: 048
     Dates: start: 20160618, end: 20160618
  3. LOVENOX [Suspect]
     Active Substance: ENOXAPARIN SODIUM
     Indication: THROMBOSIS PROPHYLAXIS
     Dosage: 4000 IU, QD
     Route: 058
     Dates: start: 20160621, end: 20160715
  4. FLAGYL [Suspect]
     Active Substance: METRONIDAZOLE\METRONIDAZOLE HYDROCHLORIDE
     Indication: LIVER ABSCESS
     Dosage: 500 MG, TID
     Route: 042
     Dates: start: 20160625, end: 20160710
  5. IOMERON [Suspect]
     Active Substance: IOMEPROL
     Indication: COMPUTERISED TOMOGRAM
     Dosage: 80 ML, UNK
     Route: 042
     Dates: start: 20160629, end: 20160629
  6. SKENAN [Suspect]
     Active Substance: MORPHINE SULFATE
     Indication: ANALGESIC THERAPY
     Dosage: 40 MG, QD
     Route: 048
     Dates: start: 20160617, end: 20160723
  7. INEXIUM                            /01479302/ [Suspect]
     Active Substance: ESOMEPRAZOLE MAGNESIUM
     Indication: PRODUCT USED FOR UNKNOWN INDICATION
     Dosage: 40 MG, QD
     Route: 048
     Dates: start: 20160617, end: 20160719
  8. VANCOMYCIN MYLAN 500 MG, POWDER FOR SOLUTION FOR INFUSION [Suspect]
     Active Substance: VANCOMYCIN
     Indication: LIVER ABSCESS
     Dosage: 2500 MG, QD
     Route: 042
     Dates: start: 20160617, end: 20160718
  9. HYDROXYZINE MYLAN 25 MG, COMPRIM? PELLICUL? S?CABLE [Suspect]
     Active Substance: HYDROXYZINE HYDROCHLORIDE
     Indication: PROCEDURAL ANXIETY
     Dosage: 25 MG, QD
     Route: 048
     Dates: start: 20160618, end: 20160618
  10. SOMATULINE LP [Suspect]
     Active Substance: LANREOTIDE ACETATE
     Indication: PRODUCT USED FOR UNKNOWN INDICATION
     Dosage: 30 MG, QD
     Route: 030
     Dates: start: 20160629, end: 20160629
  11. PIPERACILLIN,TAZOBACTAM MYLAN [Suspect]
     Active Substance: PIPERACILLIN SODIUM\TAZOBACTAM SODIUM
     Indication: LIVER ABSCESS
     Dosage: 3 G, QD
     Route: 042
     Dates: start: 20160618, end: 20160715
  12. PARACETAMOL B. BRAUN [Suspect]
     Active Substance: ACETAMINOPHEN
     Indication: ANALGESIC THERAPY
     Dosage: 1 G, PRN
     Route: 042
     Dates: start: 20160618, end: 20160704

REACTIONS (2)
  - Toxic skin eruption [Unknown]
  - Drug reaction with eosinophilia and systemic symptoms [Unknown]

NARRATIVE: CASE EVENT DATE: 20160710
